FAERS Safety Report 7158623-5 (Version None)
Quarter: 2010Q4

REPORT INFORMATION
  Report Type: 
  Country: None (occurrence: None)
  Receive Date: 20101214
  Receipt Date: 20100714
  Transmission Date: 20110411
  Serious: Yes (Hospitalization)
  Sender: FDA-Public Use
  Company Number: US-ASTRAZENECA-2010SE28073

PATIENT
  Age: 56 Year
  Sex: Female
  Weight: 127 kg

DRUGS (7)
  1. CRESTOR [Suspect]
     Indication: LOW DENSITY LIPOPROTEIN INCREASED
     Route: 048
  2. NEXIUM [Concomitant]
  3. DIOVAN [Concomitant]
  4. LEXAPRO [Concomitant]
  5. METFORMIN [Concomitant]
  6. APLENZIN [Concomitant]
  7. INDAPAMIDE [Concomitant]

REACTIONS (1)
  - PANCREATITIS [None]
